FAERS Safety Report 21744146 (Version 1)
Quarter: 2022Q4

REPORT INFORMATION
  Report Type: Spontaneous
  Country: IT (occurrence: IT)
  Receive Date: 20221218
  Receipt Date: 20221218
  Transmission Date: 20230112
  Serious: Yes (Hospitalization)
  Sender: FDA-Public Use
  Company Number: IT-MINISAL02-897566

PATIENT
  Age: 3 Year
  Sex: Male

DRUGS (1)
  1. OLANZAPINE [Suspect]
     Active Substance: OLANZAPINE
     Indication: Product used for unknown indication
     Dosage: UNK,(DOSAGE: 3UNIT OF MEASUREMENT: DOSING UNIT FREQUENCY OF ADMINISTRATION: TOTAL ROUTE OF ADMINISTR
     Route: 048
     Dates: start: 20220226, end: 20220226

REACTIONS (2)
  - Accidental exposure to product [Recovered/Resolved]
  - Somnolence [Recovered/Resolved]

NARRATIVE: CASE EVENT DATE: 20220226
